FAERS Safety Report 8082505-8 (Version None)
Quarter: 2012Q1

REPORT INFORMATION
  Report Type: 
  Country: None (occurrence: None)
  Receive Date: 20120127
  Receipt Date: 20110217
  Transmission Date: 20120608
  Serious: No
  Sender: FDA-Public Use
  Company Number: US-ABBOTT-11P-163-0706704-00

PATIENT
  Sex: Female
  Weight: 97.61 kg

DRUGS (5)
  1. HUMIRA [Suspect]
     Indication: RHEUMATOID ARTHRITIS
     Dates: start: 20100201
  2. LEVOTHYROXINE SODIUM [Concomitant]
     Indication: HYPOTHYROIDISM
  3. METHOTREXATE [Concomitant]
     Indication: RHEUMATOID ARTHRITIS
  4. PREDNISONE TAB [Concomitant]
     Indication: RHEUMATOID ARTHRITIS
  5. IBUPROFEN [Concomitant]
     Indication: RHEUMATOID ARTHRITIS

REACTIONS (4)
  - INFLUENZA LIKE ILLNESS [None]
  - PYREXIA [None]
  - LETHARGY [None]
  - DIZZINESS [None]
